FAERS Safety Report 9099303 (Version 1)
Quarter: 2013Q1

REPORT INFORMATION
  Report Type: Spontaneous
  Country: FR (occurrence: FR)
  Receive Date: 20130214
  Receipt Date: 20130214
  Transmission Date: 20140127
  Serious: Yes (Hospitalization)
  Sender: FDA-Public Use
  Company Number: FR-MERCK-1302FRA003440

PATIENT
  Age: 1 Year
  Sex: Male

DRUGS (1)
  1. AERIUS [Suspect]
     Indication: PRODUCT USED FOR UNKNOWN INDICATION
     Dosage: UNK
     Route: 048
     Dates: start: 20130107, end: 20130108

REACTIONS (2)
  - Pyrexia [Recovered/Resolved]
  - Convulsion [Recovered/Resolved]
